FAERS Safety Report 15919760 (Version 3)
Quarter: 2019Q1

REPORT INFORMATION
  Report Type: Spontaneous
  Country: JP (occurrence: JP)
  Receive Date: 20190205
  Receipt Date: 20190319
  Transmission Date: 20190417
  Serious: Yes (Other)
  Sender: FDA-Public Use
  Company Number: JP-ROCHE-2260159

PATIENT
  Age: 61 Year
  Sex: Female

DRUGS (18)
  1. WARFARIN POTASSIUM [Suspect]
     Active Substance: WARFARIN POTASSIUM
     Route: 048
     Dates: start: 20190118
  2. DIART [Concomitant]
     Active Substance: AZOSEMIDE
     Indication: AORTIC VALVE INCOMPETENCE
  3. VASOLAN [Concomitant]
     Active Substance: VERAPAMIL HYDROCHLORIDE
     Indication: MITRAL VALVE REPLACEMENT
  4. WARFARIN POTASSIUM [Suspect]
     Active Substance: WARFARIN POTASSIUM
     Route: 048
     Dates: start: 20190122
  5. ARTIST [Concomitant]
     Active Substance: CARVEDILOL
     Indication: MITRAL VALVE INCOMPETENCE
  6. WARFARIN POTASSIUM [Suspect]
     Active Substance: WARFARIN POTASSIUM
     Indication: MITRAL VALVE INCOMPETENCE
     Route: 048
     Dates: start: 20190111
  7. DIART [Concomitant]
     Active Substance: AZOSEMIDE
     Indication: MITRAL VALVE INCOMPETENCE
  8. ARTIST [Concomitant]
     Active Substance: CARVEDILOL
     Indication: AORTIC VALVE INCOMPETENCE
     Route: 065
  9. VASOLAN [Concomitant]
     Active Substance: VERAPAMIL HYDROCHLORIDE
     Indication: MITRAL VALVE INCOMPETENCE
  10. DIART [Concomitant]
     Active Substance: AZOSEMIDE
     Indication: MITRAL VALVE REPLACEMENT
  11. TAKECAB [Concomitant]
     Active Substance: VONOPRAZAN FUMURATE
     Indication: AORTIC VALVE INCOMPETENCE
     Route: 065
  12. TAKECAB [Concomitant]
     Active Substance: VONOPRAZAN FUMURATE
     Indication: MITRAL VALVE REPLACEMENT
  13. WARFARIN POTASSIUM [Suspect]
     Active Substance: WARFARIN POTASSIUM
     Indication: AORTIC VALVE INCOMPETENCE
     Route: 048
  14. VASOLAN [Concomitant]
     Active Substance: VERAPAMIL HYDROCHLORIDE
     Indication: AORTIC VALVE INCOMPETENCE
     Route: 065
  15. XOFLUZA [Suspect]
     Active Substance: BALOXAVIR MARBOXIL
     Indication: INFLUENZA
     Route: 048
     Dates: start: 20190104, end: 20190104
  16. WARFARIN POTASSIUM [Suspect]
     Active Substance: WARFARIN POTASSIUM
     Indication: MITRAL VALVE REPLACEMENT
     Route: 048
  17. ARTIST [Concomitant]
     Active Substance: CARVEDILOL
     Indication: AORTIC VALVE REPLACEMENT
  18. TAKECAB [Concomitant]
     Active Substance: VONOPRAZAN FUMURATE
     Indication: MITRAL VALVE INCOMPETENCE

REACTIONS (2)
  - International normalised ratio increased [Unknown]
  - Drug interaction [Unknown]

NARRATIVE: CASE EVENT DATE: 20190111
